FAERS Safety Report 13728609 (Version 1)
Quarter: 2017Q3

REPORT INFORMATION
  Report Type: Spontaneous
  Country: RO (occurrence: RO)
  Receive Date: 20170707
  Receipt Date: 20170707
  Transmission Date: 20171127
  Serious: Yes (Death)
  Sender: FDA-Public Use
  Company Number: RO-ROCHE-1959701

PATIENT
  Age: 47 Year
  Sex: Male

DRUGS (1)
  1. MABTHERA [Suspect]
     Active Substance: RITUXIMAB
     Indication: RHEUMATOID ARTHRITIS
     Dosage: AT TWO WEEKS, EVERY SIX MONTHS
     Route: 042
     Dates: end: 201612

REACTIONS (1)
  - Intestinal infarction [Fatal]

NARRATIVE: CASE EVENT DATE: 201706
